FAERS Safety Report 19789316 (Version 1)
Quarter: 2021Q3

REPORT INFORMATION
  Report Type: Spontaneous
  Country: US (occurrence: US)
  Receive Date: 20210904
  Receipt Date: 20210904
  Transmission Date: 20211014
  Serious: Yes (Death, Other)
  Sender: FDA-Public Use
  Company Number: NVSC2021US200968

PATIENT
  Sex: Male

DRUGS (1)
  1. TASIGNA [Suspect]
     Active Substance: NILOTINIB
     Indication: CHRONIC MYELOID LEUKAEMIA
     Dosage: UNK
     Route: 065
     Dates: start: 201002, end: 201903

REACTIONS (9)
  - Death [Fatal]
  - Cerebrovascular accident [Unknown]
  - Pain [Unknown]
  - Emotional distress [Unknown]
  - Arteriosclerosis [Unknown]
  - Injury [Unknown]
  - Anxiety [Unknown]
  - Coronary artery occlusion [Unknown]
  - Transient ischaemic attack [Unknown]

NARRATIVE: CASE EVENT DATE: 20190827
